FAERS Safety Report 7769595-4 (Version None)
Quarter: 2011Q3

REPORT INFORMATION
  Report Type: 
  Country: None (occurrence: None)
  Receive Date: 20110922
  Receipt Date: 20110705
  Transmission Date: 20111222
  Serious: Yes (Other)
  Sender: FDA-Public Use
  Company Number: US-ASTRAZENECA-2011SE37406

PATIENT
  Age: 36 Year
  Sex: Male
  Weight: 113.4 kg

DRUGS (3)
  1. SEROQUEL [Suspect]
     Indication: BIPOLAR DISORDER
     Route: 048
  2. SEROQUEL [Suspect]
     Route: 048
  3. GYLBERIDE [Concomitant]

REACTIONS (7)
  - INSOMNIA [None]
  - SUICIDAL IDEATION [None]
  - DEPRESSION [None]
  - MOOD ALTERED [None]
  - MENTAL DISORDER [None]
  - DRUG DOSE OMISSION [None]
  - EMOTIONAL DISTRESS [None]
